FAERS Safety Report 8033073-8 (Version None)
Quarter: 2011Q4

REPORT INFORMATION
  Report Type: 
  Country: None (occurrence: None)
  Receive Date: 20111223
  Receipt Date: 20111213
  Transmission Date: 20120403
  Serious: Yes (Other)
  Sender: FDA-Public Use
  Company Number: 2011SP054888

PATIENT
  Age: 10 Year
  Sex: Female

DRUGS (1)
  1. INTERFERON [Suspect]
     Indication: MALIGNANT MELANOMA
     Dosage: IV
     Route: 042
     Dates: start: 19980101

REACTIONS (4)
  - COGNITIVE DISORDER [None]
  - AMNESIA [None]
  - EDUCATIONAL PROBLEM [None]
  - ENCEPHALOPATHY [None]
